FAERS Safety Report 4398190-2 (Version None)
Quarter: 2004Q3

REPORT INFORMATION
  Report Type: 
  Country: None (occurrence: None)
  Receive Date: 20040713
  Receipt Date: 20040702
  Transmission Date: 20050211
  Serious: Yes (Hospitalization)
  Sender: FDA-Public Use
  Company Number: 200410358BNE

PATIENT
  Age: 85 Year
  Sex: Female

DRUGS (10)
  1. ASPIRIN [Suspect]
     Indication: TRANSIENT ISCHAEMIC ATTACK
     Dosage: 75 MG, OM, ORAL
     Route: 048
     Dates: end: 20040517
  2. DICLOFENAC [Suspect]
     Indication: ARTHRALGIA
     Dosage: 75 MG, BID, ORAL
     Route: 048
     Dates: end: 20040517
  3. DICLOFENAC [Suspect]
     Indication: ARTHRITIS
     Dosage: 75 MG, BID, ORAL
     Route: 048
     Dates: end: 20040517
  4. OMEPRAZOLE [Concomitant]
  5. DEXAMETHASONE [Concomitant]
  6. ALLOPURINOL [Concomitant]
  7. LATANOPROST [Concomitant]
  8. IRON SULPHATE [Concomitant]
  9. ALENDRONATE SODIUM [Concomitant]
  10. COSOPT [Concomitant]

REACTIONS (3)
  - GASTRIC ULCER [None]
  - IRON DEFICIENCY ANAEMIA [None]
  - SUBDURAL HAEMATOMA [None]
